FAERS Safety Report 7960037-2 (Version None)
Quarter: 2011Q4

REPORT INFORMATION
  Report Type: 
  Country: None (occurrence: None)
  Receive Date: 20111206
  Receipt Date: 20111121
  Transmission Date: 20120403
  Serious: Yes (Other)
  Sender: FDA-Public Use
  Company Number: PHFR2011GB006728

PATIENT
  Sex: Male

DRUGS (1)
  1. VOLTAREN-XR [Suspect]
     Indication: PAIN
     Dosage: 75 MG, QD

REACTIONS (1)
  - RIB FRACTURE [None]
